FAERS Safety Report 17697694 (Version 1)
Quarter: 2020Q2

REPORT INFORMATION
  Report Type: Spontaneous
  Country: CN (occurrence: CN)
  Receive Date: 20200423
  Receipt Date: 20200423
  Transmission Date: 20200714
  Serious: Yes (Other)
  Sender: FDA-Public Use
  Company Number: CN-UCBSA-2019052148

PATIENT
  Sex: Female
  Weight: 56.5 kg

DRUGS (2)
  1. CIMZIA [Suspect]
     Active Substance: CERTOLIZUMAB PEGOL
     Indication: ANKYLOSING SPONDYLITIS
     Dosage: 200 MILLIGRAM, UNK
     Route: 058
     Dates: start: 20191121
  2. CIMZIA [Suspect]
     Active Substance: CERTOLIZUMAB PEGOL
     Indication: OFF LABEL USE
     Dosage: UNK UNK, MONTHLY (QM)
     Route: 058
     Dates: start: 20191121

REACTIONS (4)
  - Maternal exposure during pregnancy [Unknown]
  - Off label use [Unknown]
  - Gestational diabetes [Unknown]
  - Maternal exposure during breast feeding [Unknown]

NARRATIVE: CASE EVENT DATE: 20191121
